FAERS Safety Report 7832403-7 (Version None)
Quarter: 2011Q4

REPORT INFORMATION
  Report Type: 
  Country: None (occurrence: None)
  Receive Date: 20111022
  Receipt Date: 20111010
  Transmission Date: 20120403
  Serious: Yes (Other)
  Sender: FDA-Public Use
  Company Number: US-BAYER-201018681NA

PATIENT
  Age: 27 Year
  Sex: Female
  Weight: 54.422 kg

DRUGS (10)
  1. PHENERGAN HCL [Concomitant]
     Indication: NAUSEA
     Dosage: 25 MG, PRN
     Route: 048
  2. FERROUS SULFATE TAB [Concomitant]
     Dosage: 324 MG, QD
     Route: 048
  3. LEVBID [Concomitant]
  4. LEVSIN [Concomitant]
  5. TRIAMCINOLONE [Concomitant]
  6. YAZ [Suspect]
     Indication: CONTRACEPTION
     Dosage: AS USED DOSE: UNK
     Route: 048
  7. NEXIUM [Concomitant]
     Dosage: 40 MG, BID
  8. MULTIVITAMINS AND IRON [Concomitant]
  9. SYNTHROID [Concomitant]
     Indication: HYPOTHYROIDISM
     Route: 048
  10. PEPCID [Concomitant]

REACTIONS (3)
  - GALLBLADDER DISORDER [None]
  - CHOLECYSTITIS CHRONIC [None]
  - BILIARY DYSKINESIA [None]
